FAERS Safety Report 12961525 (Version 3)
Quarter: 2017Q1

REPORT INFORMATION
  Report Type: Report from Study
  Country: US (occurrence: US)
  Receive Date: 20161121
  Receipt Date: 20170314
  Transmission Date: 20170428
  Serious: Yes (Hospitalization, Other)
  Sender: FDA-Public Use
  Company Number: US-ARIAD-2016US006800

PATIENT
  Age: 12 Year
  Sex: Male
  Weight: 44 kg

DRUGS (4)
  1. ICLUSIG [Suspect]
     Active Substance: PONATINIB
     Dosage: 15 MG, QD
     Route: 048
  2. ICLUSIG [Suspect]
     Active Substance: PONATINIB
     Dosage: 15 MG, QD
     Route: 048
     Dates: end: 20161120
  3. NELARABINE [Suspect]
     Active Substance: NELARABINE
  4. ICLUSIG [Suspect]
     Active Substance: PONATINIB
     Indication: ACUTE LYMPHOCYTIC LEUKAEMIA RECURRENT
     Dosage: 15 MG, QD
     Route: 048
     Dates: start: 20160804

REACTIONS (9)
  - Chemical eye injury [Recovered/Resolved]
  - Device related infection [Unknown]
  - Adjustment disorder [Unknown]
  - Alopecia [Unknown]
  - Acute lymphocytic leukaemia recurrent [Unknown]
  - Chemotherapy [Not Recovered/Not Resolved]
  - Pyrexia [Recovered/Resolved]
  - Escherichia test positive [Unknown]
  - Off label use [Not Recovered/Not Resolved]

NARRATIVE: CASE EVENT DATE: 20161025
